FAERS Safety Report 18789094 (Version 2)
Quarter: 2021Q1

REPORT INFORMATION
  Report Type: Other
  Country: PT (occurrence: PT)
  Receive Date: 20210126
  Receipt Date: 20210215
  Transmission Date: 20210419
  Serious: Yes (Death)
  Sender: FDA-Public Use
  Company Number: PT-ROCHE-2753968

PATIENT
  Age: 68 Year
  Sex: Female

DRUGS (1)
  1. TECENTRIQ [Suspect]
     Active Substance: ATEZOLIZUMAB
     Indication: NON-SMALL CELL LUNG CANCER METASTATIC
     Dosage: TREATMENT SUSPENSION DATE: 14/SEP/2020?2ND ADMINISTRATION ON 09/NOV/2020
     Route: 042
     Dates: start: 20200824, end: 20201130

REACTIONS (3)
  - Acute kidney injury [Fatal]
  - Respiratory tract infection [Fatal]
  - Anaemia [Fatal]

NARRATIVE: CASE EVENT DATE: 20201130
